FAERS Safety Report 11414895 (Version 1)
Quarter: 2015Q3

REPORT INFORMATION
  Report Type: Spontaneous
  Country: US (occurrence: None)
  Receive Date: 20150824
  Receipt Date: 20150824
  Transmission Date: 20151125
  Serious: No
  Sender: FDA-Public Use
  Company Number: None

PATIENT
  Age: 44 Year
  Sex: Female

DRUGS (4)
  1. DOXYCYCLINE. [Concomitant]
     Active Substance: DOXYCYCLINE
  2. INDOMETHACIN. [Concomitant]
     Active Substance: INDOMETHACIN
  3. GANIRELIX 250MCG ORGANON USA INC [Suspect]
     Active Substance: GANIRELIX
     Indication: INFERTILITY FEMALE
     Dosage: INJECTED UNDER THE SKIN
     Route: 058
     Dates: start: 20150818
  4. CLOMIPHENE [Concomitant]
     Active Substance: CLOMIPHENE

REACTIONS (3)
  - Coordination abnormal [None]
  - Dyskinesia [None]
  - Hypotonia [None]

NARRATIVE: CASE EVENT DATE: 20150818
